FAERS Safety Report 8830887 (Version 3)
Quarter: 2013Q1

REPORT INFORMATION
  Report Type: Spontaneous
  Country: US (occurrence: US)
  Receive Date: 20121008
  Receipt Date: 20130201
  Transmission Date: 20140127
  Serious: Yes (Hospitalization, Other)
  Sender: FDA-Public Use
  Company Number: US-PFIZER INC-2012245544

PATIENT
  Age: 81 Year
  Sex: Female
  Weight: 69.84 kg

DRUGS (6)
  1. ZYVOX [Suspect]
     Indication: CELLULITIS
     Dosage: 600 MG, 2X/DAY
     Route: 048
     Dates: start: 20120808, end: 20120819
  2. NORVASC [Suspect]
     Dosage: UNK
  3. NITROFURAN [Concomitant]
  4. METOPROLOL [Concomitant]
  5. TEMAZEPAM [Concomitant]
  6. IMODIUM A-D [Concomitant]

REACTIONS (6)
  - Cellulitis [Unknown]
  - Drug ineffective [Unknown]
  - Rash pruritic [Unknown]
  - Porphyria [Unknown]
  - Eosinophilia [Unknown]
  - Hypersensitivity [Unknown]
